FAERS Safety Report 18350245 (Version 1)
Quarter: 2020Q4

REPORT INFORMATION
  Report Type: Spontaneous
  Country: US (occurrence: US)
  Receive Date: 20201006
  Receipt Date: 20201006
  Transmission Date: 20210114
  Serious: Yes (Hospitalization, Other)
  Sender: FDA-Public Use
  Company Number: US-JNJFOC-A-NJ2019-195746

PATIENT
  Age: 73 Year
  Sex: Female
  Weight: 109.6 kg

DRUGS (21)
  1. UPTRAVI [Suspect]
     Active Substance: SELEXIPAG
     Dosage: 400 MCG, BID
     Route: 048
     Dates: start: 20190819
  2. ROSUVASTATIN. [Concomitant]
     Active Substance: ROSUVASTATIN
     Indication: ARTERIAL DISORDER
     Dosage: TAKE 1 TABLET BY MOUTH EVERY EVENING
     Route: 048
  3. METOPROLOL. [Concomitant]
     Active Substance: METOPROLOL
     Indication: HYPERTENSION
     Dosage: TAKE 50 MG BY MOUTH EVERY MORNING FOR 30 DAYS.
     Route: 048
  4. LEVOTHYROXINE. [Concomitant]
     Active Substance: LEVOTHYROXINE
     Indication: HYPOTHYROIDISM
     Route: 048
  5. FLUTICASONE W/SALMETEROL [Concomitant]
     Active Substance: FLUTICASONE PROPIONATE\SALMETEROL XINAFOATE
     Indication: CHRONIC OBSTRUCTIVE PULMONARY DISEASE
     Dosage: 100-50 MCG/DOSE , TAKE 1 PUDD BY INHALATION EVERY 12 HOURS.
  6. ALBUTEROL                          /00139501/ [Concomitant]
     Active Substance: ALBUTEROL
     Indication: RESPIRATORY DISORDER
     Dosage: 108 (90 BASE) MCG/ACT, TAKE 2 PUFFS BY INHALATION EVERY 6 HOURS AS NEEDED.
  7. TADALAFIL. [Concomitant]
     Active Substance: TADALAFIL
  8. SYSTANE BALANCE [Concomitant]
     Active Substance: PROPYLENE GLYCOL
     Indication: DRY EYE
     Dosage: APPLY 1 DROP TO EYE 4 TIMES DAILY AS NEEDED.
  9. SACCHAROMYCES BOULARDII [Concomitant]
     Active Substance: SACCHAROMYCES CEREVISIAE
     Indication: DIARRHOEA
     Route: 048
  10. UPTRAVI [Suspect]
     Active Substance: SELEXIPAG
     Dosage: 200 MCG, BID
     Route: 048
     Dates: start: 20190819
  11. ADVAIR HFA [Concomitant]
     Active Substance: FLUTICASONE PROPIONATE\SALMETEROL XINAFOATE
     Dosage: 100- 50 MCG, TAKE 1 PUFF INHALATION EVERY 12 HOURS.
  12. PROPYLENE GLYCOL [Concomitant]
     Active Substance: PROPYLENE GLYCOL
     Dosage: APPLY 1 DROP TO EYE 4 TIMES DAILY AS NEEDED
  13. ESTRADIOL. [Concomitant]
     Active Substance: ESTRADIOL
     Indication: ATROPHIC VULVOVAGINITIS
     Dosage: PLACE 2 G VAGINALLY THREE TIMES PER WEEK.
     Route: 067
  14. FLUTICASONE. [Concomitant]
     Active Substance: FLUTICASONE
     Indication: RHINITIS PERENNIAL
     Dosage: 50 MCG/ACT, 1 SPRAY BY NASAL ROUTE 1 TIME DAILY AS NEEDED.
     Route: 045
  15. NYSTATIN. [Concomitant]
     Active Substance: NYSTATIN
     Indication: OROPHARYNGEAL CANDIDIASIS
     Dosage: SWISH AND SPLIT 5ML BY MOUTH 4 TIMES DAILY.
  16. OXYGEN. [Concomitant]
     Active Substance: OXYGEN
  17. FUROSEMIDE. [Concomitant]
     Active Substance: FUROSEMIDE
     Indication: OEDEMA
     Dosage: TAKE 4 TABLETS BY MOUTH DAILY. MAY TAKE AN ADDITIONAL 40 MG IN PM PRN WEIGHT GAIN }2-3LBS WEIGHT GAI
     Route: 048
  18. TADALAFIL. [Concomitant]
     Active Substance: TADALAFIL
     Indication: PULMONARY ARTERIAL HYPERTENSION
     Route: 048
  19. UPTRAVI [Suspect]
     Active Substance: SELEXIPAG
     Indication: PULMONARY ARTERIAL HYPERTENSION
     Dosage: 600 MCG, BID
     Route: 048
     Dates: start: 20190801
  20. TYLENOL [Concomitant]
     Active Substance: ACETAMINOPHEN
  21. LOSARTAN POTASSIUM. [Concomitant]
     Active Substance: LOSARTAN POTASSIUM
     Route: 048

REACTIONS (23)
  - Sleep apnoea syndrome [Unknown]
  - Obesity [Unknown]
  - Cardiac failure congestive [Unknown]
  - Headache [Unknown]
  - Flushing [Unknown]
  - Atrial fibrillation [Recovered/Resolved]
  - Hyponatraemia [Recovered/Resolved]
  - Pericardial effusion [Unknown]
  - Pulmonary arterial hypertension [Unknown]
  - Fluid retention [Unknown]
  - Acute kidney injury [Unknown]
  - Atrophic vulvovaginitis [Recovering/Resolving]
  - Pleural effusion [Unknown]
  - Skin infection [Unknown]
  - Hypotension [Recovered/Resolved]
  - Chronic kidney disease [Unknown]
  - Systemic inflammatory response syndrome [Unknown]
  - Hypothyroidism [Unknown]
  - Diarrhoea [Not Recovered/Not Resolved]
  - Hypokalaemia [Unknown]
  - Pain in extremity [Unknown]
  - Chronic obstructive pulmonary disease [Unknown]
  - Muscle spasms [Unknown]

NARRATIVE: CASE EVENT DATE: 20190902
